FAERS Safety Report 13636267 (Version 1)
Quarter: 2017Q2

REPORT INFORMATION
  Report Type: Spontaneous
  Country: US (occurrence: US)
  Receive Date: 20170609
  Receipt Date: 20170609
  Transmission Date: 20170830
  Serious: Yes (Hospitalization)
  Sender: FDA-Public Use
  Company Number: US-BEH-2017081129

PATIENT
  Age: 36 Year
  Sex: Female
  Weight: 70.75 kg

DRUGS (12)
  1. HIZENTRA [Suspect]
     Active Substance: HUMAN IMMUNOGLOBULIN G
     Indication: IMMUNODEFICIENCY
     Dosage: 10 G, UNK
     Route: 058
     Dates: start: 20151005
  2. EPIPEN [Concomitant]
     Active Substance: EPINEPHRINE
  3. BIOTIN [Concomitant]
     Active Substance: BIOTIN
  4. LMX                                /00033401/ [Concomitant]
  5. ACETAMINOPHEN. [Concomitant]
     Active Substance: ACETAMINOPHEN
  6. ZOLOFT [Concomitant]
     Active Substance: SERTRALINE HYDROCHLORIDE
  7. DULERA [Concomitant]
     Active Substance: FORMOTEROL FUMARATE DIHYDRATE\MOMETASONE FUROATE
  8. FOLIC ACID. [Concomitant]
     Active Substance: FOLIC ACID
  9. IRON [Concomitant]
     Active Substance: IRON
  10. HIZENTRA [Suspect]
     Active Substance: HUMAN IMMUNOGLOBULIN G
     Dosage: UNK
     Route: 058
  11. DIPHENHYDRAMINE. [Concomitant]
     Active Substance: DIPHENHYDRAMINE
  12. VITAFOL                            /00024201/ [Concomitant]

REACTIONS (2)
  - Dehydration [Recovered/Resolved]
  - Administration site pain [Recovered/Resolved]

NARRATIVE: CASE EVENT DATE: 201705
